FAERS Safety Report 15724703 (Version 2)
Quarter: 2019Q1

REPORT INFORMATION
  Report Type: Spontaneous
  Country: US (occurrence: US)
  Receive Date: 20181214
  Receipt Date: 20190114
  Transmission Date: 20190417
  Serious: Yes (Hospitalization, Other)
  Sender: FDA-Public Use
  Company Number: US-OTSUKA-2018_017073

PATIENT
  Sex: Male

DRUGS (4)
  1. SEROQUEL [Concomitant]
     Active Substance: QUETIAPINE FUMARATE
     Indication: PRODUCT USED FOR UNKNOWN INDICATION
     Dosage: UNK
     Route: 065
  2. FLUOXETINE [Concomitant]
     Active Substance: FLUOXETINE HYDROCHLORIDE
     Indication: PRODUCT USED FOR UNKNOWN INDICATION
     Dosage: UNK
     Route: 065
  3. ABILIFY [Suspect]
     Active Substance: ARIPIPRAZOLE
     Indication: BIPOLAR DISORDER
     Dosage: 5 MG, QD
     Route: 065
     Dates: start: 200401, end: 201205
  4. ALPRAZOLAM. [Concomitant]
     Active Substance: ALPRAZOLAM
     Indication: PRODUCT USED FOR UNKNOWN INDICATION
     Dosage: UNK
     Route: 065

REACTIONS (18)
  - Pain [Unknown]
  - Product dose omission [Unknown]
  - Obsessive-compulsive disorder [Recovered/Resolved]
  - Toothache [Unknown]
  - Gambling disorder [Recovered/Resolved]
  - Staphylococcal infection [Unknown]
  - Eating disorder [Recovered/Resolved]
  - Back pain [Unknown]
  - Weight increased [Unknown]
  - Irritability [Unknown]
  - Economic problem [Unknown]
  - Depressed mood [Unknown]
  - Hypersexuality [Unknown]
  - Inability to afford medication [Unknown]
  - Suicidal ideation [Unknown]
  - Hypersomnia [Unknown]
  - Binge eating [Unknown]
  - Insomnia [Unknown]

NARRATIVE: CASE EVENT DATE: 2004
